FAERS Safety Report 5852408-5 (Version None)
Quarter: 2008Q3

REPORT INFORMATION
  Report Type: 
  Country: None (occurrence: None)
  Receive Date: 20080819
  Receipt Date: 20080815
  Transmission Date: 20090109
  Serious: Yes (Other)
  Sender: FDA-Public Use
  Company Number: A0743016A

PATIENT
  Age: 68 Year
  Sex: Female

DRUGS (1)
  1. METHYLCELLULOSE SUSPENSION (METHYLCELLULOSE) REGULAR [Suspect]
     Indication: DRUG USE FOR UNKNOWN INDICATION
     Dosage: ORAL
     Route: 048
     Dates: start: 20080801, end: 20080801

REACTIONS (2)
  - ANAL PRURITUS [None]
  - RECTAL HAEMORRHAGE [None]
